FAERS Safety Report 6719180-8 (Version None)
Quarter: 2010Q2

REPORT INFORMATION
  Report Type: 
  Country: None (occurrence: None)
  Receive Date: 20100510
  Receipt Date: 20100510
  Transmission Date: 20101027
  Serious: No
  Sender: FDA-Public Use
  Company Number: None

PATIENT
  Sex: Female
  Weight: 85.9 kg

DRUGS (1)
  1. MACROBID [Suspect]

REACTIONS (8)
  - BLOOD PRESSURE FLUCTUATION [None]
  - DEPRESSION [None]
  - DYSARTHRIA [None]
  - DYSPNOEA [None]
  - MOVEMENT DISORDER [None]
  - MUSCLE DISORDER [None]
  - PAIN [None]
  - POLYNEUROPATHY [None]
